FAERS Safety Report 9137977 (Version 1)
Quarter: 2013Q1

REPORT INFORMATION
  Report Type: Spontaneous
  Country: US (occurrence: US)
  Receive Date: 20130304
  Receipt Date: 20130304
  Transmission Date: 20140127
  Serious: Yes (Other)
  Sender: FDA-Public Use
  Company Number: CHPA2013US003634

PATIENT
  Age: 60 Year
  Sex: Female

DRUGS (1)
  1. COMTREX MAXIMUM STRENGTH COLD AND COUGH NON-DROWSY [Suspect]
     Indication: NASOPHARYNGITIS
     Dosage: 1 DF, UNK
     Route: 048

REACTIONS (4)
  - Skin cancer [Unknown]
  - Therapeutic response unexpected [Unknown]
  - Expired drug administered [Unknown]
  - Underdose [Unknown]
